FAERS Safety Report 22121090 (Version 1)
Quarter: 2023Q1

REPORT INFORMATION
  Report Type: Spontaneous
  Country: BR (occurrence: BR)
  Receive Date: 20230321
  Receipt Date: 20230321
  Transmission Date: 20230418
  Serious: Yes (Hospitalization, Other)
  Sender: FDA-Public Use
  Company Number: BR-PFIZER INC-202300118713

PATIENT
  Age: 92 Year
  Sex: Female

DRUGS (2)
  1. LORAZEPAM [Suspect]
     Active Substance: LORAZEPAM
     Indication: Depression
  2. TRAZODONE [Concomitant]
     Active Substance: TRAZODONE HYDROCHLORIDE
     Indication: Depression

REACTIONS (25)
  - Pulmonary oedema [Recovered/Resolved]
  - Cardiac failure [Unknown]
  - Pseudomonas infection [Recovered/Resolved]
  - Syncope [Unknown]
  - COVID-19 [Recovered/Resolved with Sequelae]
  - Fatigue [Unknown]
  - Lung disorder [Unknown]
  - Peripheral swelling [Unknown]
  - Decreased appetite [Unknown]
  - Swelling [Unknown]
  - Blood pressure decreased [Unknown]
  - Asthenia [Unknown]
  - Coronary artery disease [Unknown]
  - Hypertension [Unknown]
  - Anaemia [Unknown]
  - Osteoporosis [Unknown]
  - Arthritis [Unknown]
  - Blood cholesterol abnormal [Unknown]
  - Infection [Unknown]
  - Dyspnoea [Unknown]
  - Visual impairment [Unknown]
  - Balance disorder [Unknown]
  - Bacterial infection [Unknown]
  - Gastrointestinal infection [Unknown]
  - Cystitis [Unknown]

NARRATIVE: CASE EVENT DATE: 20220401
